FAERS Safety Report 18502316 (Version 1)
Quarter: 2020Q4

REPORT INFORMATION
  Report Type: Other
  Country: US (occurrence: US)
  Receive Date: 20201113
  Receipt Date: 20201113
  Transmission Date: 20210114
  Serious: No
  Sender: FDA-Public Use
  Company Number: US-LEADIANT BIOSCIENCES INC-2019STPI000604

PATIENT

DRUGS (11)
  1. CELLCEPT [Concomitant]
     Active Substance: MYCOPHENOLATE MOFETIL\MYCOPHENOLATE MOFETIL HYDROCHLORIDE
  2. LEVOTHYROXINE. [Concomitant]
     Active Substance: LEVOTHYROXINE
  3. PROCYSBI [Concomitant]
     Active Substance: CYSTEAMINE BITARTRATE
  4. CLARITINE [Concomitant]
     Active Substance: LORATADINE
  5. VITAMIN D NOS [Concomitant]
     Active Substance: VITAMIN D NOS
  6. CANDESARTAN. [Concomitant]
     Active Substance: CANDESARTAN
  7. OMEPRAZOLE. [Concomitant]
     Active Substance: OMEPRAZOLE
  8. IMURAN [Concomitant]
     Active Substance: AZATHIOPRINE
  9. PREDNISONE. [Concomitant]
     Active Substance: PREDNISONE
  10. CYSTARAN [Suspect]
     Active Substance: CYSTEAMINE HYDROCHLORIDE
     Indication: CYSTINOSIS
     Dosage: 1 DROP BOTH EYES EVERY WAKING HOUR
     Route: 047
     Dates: start: 20150905
  11. TACROLIMUS. [Concomitant]
     Active Substance: TACROLIMUS

REACTIONS (2)
  - Intentional product misuse [Unknown]
  - Product dose omission issue [Not Recovered/Not Resolved]

NARRATIVE: CASE EVENT DATE: 2019
